FAERS Safety Report 8539816 (Version 3)
Quarter: 2012Q4

REPORT INFORMATION
  Report Type: 
  Country: US (occurrence: US)
  Receive Date: 20120502
  Receipt Date: 20121005
  Transmission Date: 20130627
  Serious: Yes (Death, Hospitalization)
  Sender: FDA-Public Use
  Company Number: US-PFIZER INC-2012104162

PATIENT
  Age: 69 Year
  Sex: Female
  Weight: 52.15 kg

DRUGS (1)
  1. ADVIL [Suspect]
     Indication: PAIN
     Dosage: 400 mg (two 200 mg caps) once
     Route: 048
     Dates: start: 201204, end: 201204

REACTIONS (14)
  - Liver disorder [Fatal]
  - Abdominal distension [Not Recovered/Not Resolved]
  - Abdominal distension [Not Recovered/Not Resolved]
  - Abdominal discomfort [Not Recovered/Not Resolved]
  - Malaise [Not Recovered/Not Resolved]
  - Skin disorder [Not Recovered/Not Resolved]
  - Nervousness [Not Recovered/Not Resolved]
  - Oedema peripheral [Unknown]
  - Dyspepsia [Unknown]
  - Pharyngeal oedema [Unknown]
  - Mobility decreased [Unknown]
  - Dysphonia [Unknown]
  - Hearing impaired [Unknown]
  - Decreased appetite [Unknown]
